FAERS Safety Report 7625022-9 (Version None)
Quarter: 2011Q3

REPORT INFORMATION
  Report Type: 
  Country: None (occurrence: None)
  Receive Date: 20110721
  Receipt Date: 20110712
  Transmission Date: 20111222
  Serious: No
  Sender: FDA-Public Use
  Company Number: US-BIOGENIDEC-2011BI011920

PATIENT
  Age: 65 Year
  Sex: Female

DRUGS (1)
  1. TYSABRI [Suspect]
     Indication: MULTIPLE SCLEROSIS
     Route: 042
     Dates: start: 20101222, end: 20110513

REACTIONS (6)
  - COELIAC DISEASE [None]
  - POOR VENOUS ACCESS [None]
  - DIARRHOEA [None]
  - ABDOMINAL PAIN UPPER [None]
  - INFUSION SITE HAEMATOMA [None]
  - MULTIPLE SCLEROSIS RELAPSE [None]
